FAERS Safety Report 10012648 (Version 1)
Quarter: 2014Q1

REPORT INFORMATION
  Report Type: Report from Study
  Country: US (occurrence: US)
  Receive Date: 20140314
  Receipt Date: 20140314
  Transmission Date: 20141002
  Serious: Yes (Hospitalization)
  Sender: FDA-Public Use
  Company Number: US-ABBVIE-14P-163-1210048-00

PATIENT
  Sex: Female

DRUGS (4)
  1. HUMIRA [Suspect]
     Indication: CROHN^S DISEASE
  2. HUMIRA [Suspect]
  3. AZATHIOPRINE [Concomitant]
     Indication: PRODUCT USED FOR UNKNOWN INDICATION
     Dosage: 1 PILL
  4. ALLEGRA [Concomitant]
     Indication: SEASONAL ALLERGY
     Dosage: OCCASIONALLY

REACTIONS (4)
  - Anal stenosis [Not Recovered/Not Resolved]
  - Hypoaesthesia oral [Unknown]
  - Paraesthesia oral [Unknown]
  - Lip swelling [Unknown]
